FAERS Safety Report 22056235 (Version 1)
Quarter: 2023Q1

REPORT INFORMATION
  Report Type: Other
  Country: None (occurrence: US)
  Receive Date: 20230302
  Receipt Date: 20230302
  Transmission Date: 20230417
  Serious: Yes (Life-Threatening, Hospitalization)
  Sender: FDA-Public Use
  Company Number: US-California Department of Public Health-2138649

PATIENT
  Age: 4 Month
  Sex: Female
  Weight: 6.9 kg

DRUGS (10)
  1. BABYBIG [Suspect]
     Active Substance: HUMAN BOTULINUM NEUROTOXIN A/B IMMUNE GLOBULIN
     Indication: Botulism
     Route: 041
     Dates: start: 20230216, end: 20230216
  2. ALBUTEROL [Concomitant]
     Active Substance: ALBUTEROL
     Dates: start: 202302
  3. ACETAZOLAMIDE [Concomitant]
     Active Substance: ACETAZOLAMIDE
     Route: 042
     Dates: start: 20230219, end: 20230221
  4. DOCUSATE SODIUM [Concomitant]
     Active Substance: DOCUSATE SODIUM
     Dates: start: 202302
  5. FAMOTIDINE [Concomitant]
     Active Substance: FAMOTIDINE
     Route: 042
     Dates: start: 202302, end: 202302
  6. SENNA [Concomitant]
     Active Substance: SENNA LEAF\SENNOSIDES\SENNOSIDES A AND B
     Dates: start: 202302
  7. sodium chloride 3% inhalation [Concomitant]
     Route: 050
     Dates: start: 202302
  8. DEXMEDETOMIDINE [Concomitant]
     Active Substance: DEXMEDETOMIDINE
     Route: 042
     Dates: start: 202302
  9. FENTANYL [Concomitant]
     Active Substance: FENTANYL
     Route: 042
     Dates: start: 202302
  10. D5W 0.9% NaCl [Concomitant]
     Route: 042
     Dates: start: 202302

REACTIONS (1)
  - Cardio-respiratory arrest [Recovered/Resolved]

NARRATIVE: CASE EVENT DATE: 20230221
